FAERS Safety Report 5193556-5 (Version None)
Quarter: 2006Q4

REPORT INFORMATION
  Report Type: 
  Country: None (occurrence: None)
  Receive Date: 20061228
  Receipt Date: 20060811
  Transmission Date: 20070319
  Serious: No
  Sender: FDA-Public Use
  Company Number: PAR-4673

PATIENT
  Age: 50 Year
  Sex: Female

DRUGS (1)
  1. FLUTICASONE PROPIONATE [Suspect]
     Indication: DRUG USE FOR UNKNOWN INDICATION
     Route: 045
     Dates: start: 20060101

REACTIONS (3)
  - EPISTAXIS [None]
  - PHARMACEUTICAL PRODUCT COMPLAINT [None]
  - SKIN LACERATION [None]
